FAERS Safety Report 17534715 (Version 2)
Quarter: 2020Q2

REPORT INFORMATION
  Report Type: Spontaneous
  Country: US (occurrence: US)
  Receive Date: 20200312
  Receipt Date: 20200629
  Transmission Date: 20200713
  Serious: No
  Sender: FDA-Public Use
  Company Number: US-BAUSCH-BL-2020-004763

PATIENT
  Age: 40 Year
  Sex: Female

DRUGS (3)
  1. GLUMETZA [Suspect]
     Active Substance: METFORMIN HYDROCHLORIDE
     Indication: PRODUCT USE IN UNAPPROVED INDICATION
     Dosage: SWITCHED TO WHITE TABLET
     Route: 048
     Dates: start: 201907, end: 202001
  2. GLUMETZA [Suspect]
     Active Substance: METFORMIN HYDROCHLORIDE
     Dosage: START DATE: APPROXIMATELY 1 AND A HALF WEEKS AGO FROM THE DATE OF REPORT (WHITE TABLET)
     Route: 048
     Dates: start: 2020
  3. GLUMETZA [Suspect]
     Active Substance: METFORMIN HYDROCHLORIDE
     Indication: POLYCYSTIC OVARIES
     Dosage: OVER 10 YEARS AGO FROM THE DATE OF REPORT, BLUE TABLET
     Route: 048
     Dates: end: 201907

REACTIONS (4)
  - Product substitution issue [Unknown]
  - Myalgia [Not Recovered/Not Resolved]
  - Diarrhoea [Not Recovered/Not Resolved]
  - Product use in unapproved indication [Unknown]

NARRATIVE: CASE EVENT DATE: 201907
